FAERS Safety Report 17811154 (Version 1)
Quarter: 2020Q2

REPORT INFORMATION
  Report Type: Spontaneous
  Country: FR (occurrence: FR)
  Receive Date: 20200521
  Receipt Date: 20200521
  Transmission Date: 20200714
  Serious: Yes (Other)
  Sender: FDA-Public Use
  Company Number: FR-ACCORD-182588

PATIENT
  Age: 28 Year
  Sex: Male

DRUGS (2)
  1. LYRICA [Suspect]
     Active Substance: PREGABALIN
     Dosage: UP TO 14 TABLETS PER DAY
     Route: 048
     Dates: start: 2016
  2. CLONAZEPAM. [Suspect]
     Active Substance: CLONAZEPAM
     Dosage: UP TO 2 TABLETS PER DAY
     Route: 048
     Dates: start: 2017

REACTIONS (2)
  - Drug dependence [Unknown]
  - Intentional product misuse [Unknown]

NARRATIVE: CASE EVENT DATE: 2020
